FAERS Safety Report 24126775 (Version 2)
Quarter: 2024Q3

REPORT INFORMATION
  Report Type: Spontaneous
  Country: US (occurrence: US)
  Receive Date: 20240723
  Receipt Date: 20240816
  Transmission Date: 20241016
  Serious: No
  Sender: BAYER
  Company Number: US-BAYER-2024A104538

PATIENT
  Age: 36 Year
  Sex: Female
  Weight: 73.469 kg

DRUGS (6)
  1. MIRENA [Suspect]
     Active Substance: LEVONORGESTREL
     Indication: Intrauterine contraception
     Dosage: 20?G/DAY
     Route: 015
     Dates: start: 202001, end: 20240423
  2. ORTHO TRI CYCLEN [Concomitant]
     Active Substance: ETHINYL ESTRADIOL\NORGESTIMATE
     Dosage: UNK
     Route: 048
     Dates: start: 20240222
  3. SYEDA [Concomitant]
     Active Substance: DROSPIRENONE\ETHINYL ESTRADIOL
     Route: 048
  4. AMITRIPTYLINE HYDROCHLORIDE [Concomitant]
     Active Substance: AMITRIPTYLINE HYDROCHLORIDE
     Route: 048
  5. LEVOTHYROXINE [Concomitant]
     Active Substance: LEVOTHYROXINE\LEVOTHYROXINE SODIUM
     Dosage: 125 MICROGRAM PER GRAM
     Route: 048
  6. ABILIFY [Concomitant]
     Active Substance: ARIPIPRAZOLE
     Dosage: 10 MG
     Route: 048

REACTIONS (5)
  - Abdominal pain lower [None]
  - Genital haemorrhage [None]
  - Pelvic pain [Recovered/Resolved]
  - Perineal pain [None]
  - Acne [Not Recovered/Not Resolved]
